FAERS Safety Report 9395576 (Version 1)
Quarter: 2013Q3

REPORT INFORMATION
  Report Type: Spontaneous
  Country: JP (occurrence: JP)
  Receive Date: 20130711
  Receipt Date: 20130711
  Transmission Date: 20140515
  Serious: Yes (Other)
  Sender: FDA-Public Use
  Company Number: PHHY2013JP072658

PATIENT
  Sex: Female

DRUGS (12)
  1. RIBAVIRIN [Suspect]
     Indication: VIRAEMIA
     Dosage: 600 MG, QD
  2. RIBAVIRIN [Suspect]
     Dosage: 200 MG, QD
  3. RIBAVIRIN [Suspect]
     Dosage: 400 MG, QD
  4. RIBAVIRIN [Suspect]
     Dosage: 200 MG, QD
  5. TELAVIC [Suspect]
     Indication: VIRAEMIA
     Dosage: 2250 MG, QD
  6. TELAVIC [Suspect]
     Dosage: 750 MG, QD
  7. TELAVIC [Suspect]
     Dosage: 1000 MG, QD
  8. TELAVIC [Suspect]
     Dosage: 1250 MG, QD
  9. TELAVIC [Suspect]
     Dosage: 750 MG, QD
  10. TELAVIC [Suspect]
     Dosage: 1000 MG, QD
  11. PEGINTERFERON ALFA-2B [Suspect]
     Indication: VIRAEMIA
     Dosage: 1.5 UG/KG, QW
  12. PEGINTERFERON ALFA-2B [Suspect]
     Dosage: 1.5 UG/KG, QW

REACTIONS (6)
  - Gastric ulcer [Recovered/Resolved]
  - Hyperuricaemia [Recovered/Resolved]
  - Anaemia [Not Recovered/Not Resolved]
  - Haemoglobin decreased [Not Recovered/Not Resolved]
  - Pruritus [Recovering/Resolving]
  - Rash [Recovered/Resolved]
